FAERS Safety Report 15635002 (Version 2)
Quarter: 2019Q1

REPORT INFORMATION
  Report Type: Spontaneous
  Country: US (occurrence: US)
  Receive Date: 20181119
  Receipt Date: 20190128
  Transmission Date: 20190417
  Serious: Yes (Other)
  Sender: FDA-Public Use
  Company Number: US-BIOGEN-2018BI00660864

PATIENT
  Sex: Female

DRUGS (2)
  1. TYSABRI [Suspect]
     Active Substance: NATALIZUMAB
     Indication: MULTIPLE SCLEROSIS
     Route: 065
     Dates: start: 20180924
  2. TYSABRI [Suspect]
     Active Substance: NATALIZUMAB
     Route: 065
     Dates: start: 20150505, end: 20180424

REACTIONS (9)
  - Fall [Recovered/Resolved]
  - Mental impairment [Recovered/Resolved]
  - Gait disturbance [Recovered/Resolved]
  - Incontinence [Recovered/Resolved]
  - Suicidal ideation [Recovered/Resolved]
  - Depression [Recovered/Resolved]
  - Underdose [Not Recovered/Not Resolved]
  - Dehydration [Recovered/Resolved]
  - Confusional state [Recovered/Resolved]
